FAERS Safety Report 4645609-5 (Version None)
Quarter: 2005Q2

REPORT INFORMATION
  Report Type: 
  Country: None (occurrence: None)
  Receive Date: 20050331
  Receipt Date: 20041210
  Transmission Date: 20051028
  Serious: No
  Sender: FDA-Public Use
  Company Number: 04P-163-0283073

PATIENT
  Age: 66 Year
  Sex: Male
  Weight: 100 kg

DRUGS (4)
  1. HUMIRA [Suspect]
     Indication: RHEUMATOID ARTHRITIS
     Dosage: 40 MG, 1 IN 1 WK, SUBCUTANEOUS 40 MG 1 IN 2 WK SUBCUTANEOUS
     Route: 058
     Dates: start: 20040601, end: 20041101
  2. HUMIRA [Suspect]
     Indication: RHEUMATOID ARTHRITIS
     Dosage: 40 MG, 1 IN 1 WK, SUBCUTANEOUS 40 MG 1 IN 2 WK SUBCUTANEOUS
     Route: 058
     Dates: start: 20041101, end: 20041201
  3. PREDNISONE [Concomitant]
  4. IBUPROFEN [Concomitant]

REACTIONS (1)
  - RASH [None]
